FAERS Safety Report 7267471-7 (Version None)
Quarter: 2011Q1

REPORT INFORMATION
  Report Type: 
  Country: None (occurrence: None)
  Receive Date: 20110201
  Receipt Date: 20110119
  Transmission Date: 20110831
  Serious: Yes (Other)
  Sender: FDA-Public Use
  Company Number: US-MYLANLABS-2010S1023067

PATIENT
  Age: 30 Year
  Sex: Female

DRUGS (3)
  1. AMNESTEEM [Suspect]
     Dates: start: 20071231
  2. CONTRACEPTIVE [Concomitant]
     Route: 048
     Dates: end: 20100101
  3. ACCUTANE [Suspect]

REACTIONS (2)
  - ABORTION SPONTANEOUS [None]
  - DRUG EXPOSURE BEFORE PREGNANCY [None]
